FAERS Safety Report 4303433-7 (Version None)
Quarter: 2004Q1

REPORT INFORMATION
  Report Type: 
  Country: None (occurrence: None)
  Receive Date: 20040223
  Receipt Date: 20030508
  Transmission Date: 20041129
  Serious: Yes (Hospitalization, Other)
  Sender: FDA-Public Use
  Company Number: KII-2003-0007107

PATIENT
  Age: 33 Year
  Sex: Male

DRUGS (2)
  1. MS CONTIN [Suspect]
  2. ATIVAN [Suspect]

REACTIONS (12)
  - ACIDOSIS [None]
  - AGGRESSION [None]
  - AGITATION [None]
  - AREFLEXIA [None]
  - BLOOD POTASSIUM DECREASED [None]
  - BLOOD PRESSURE SYSTOLIC DECREASED [None]
  - COMA [None]
  - HYPOPNOEA [None]
  - MULTIPLE DRUG OVERDOSE [None]
  - NERVOUS SYSTEM DISORDER [None]
  - PUPILLARY REFLEX IMPAIRED [None]
  - SELF-MEDICATION [None]
